FAERS Safety Report 6446933-6 (Version None)
Quarter: 2009Q4

REPORT INFORMATION
  Report Type: 
  Country: None (occurrence: None)
  Receive Date: 20091119
  Receipt Date: 20091023
  Transmission Date: 20100525
  Serious: Yes (Disabling, Other)
  Sender: FDA-Public Use
  Company Number: US-MERCK-0906USA04112

PATIENT
  Age: 47 Year
  Sex: Male

DRUGS (6)
  1. ISENTRESS [Suspect]
     Indication: HIV INFECTION
     Route: 048
     Dates: start: 20081117
  2. TRUVADA [Concomitant]
     Route: 065
  3. INTELENCE [Concomitant]
     Route: 065
  4. NORVIR [Concomitant]
     Route: 048
     Dates: start: 20081117
  5. PREZISTA [Concomitant]
     Route: 048
     Dates: start: 20081117
  6. SELZENTRY [Concomitant]
     Route: 048
     Dates: start: 20081117

REACTIONS (1)
  - NON-HODGKIN'S LYMPHOMA [None]
